FAERS Safety Report 9612951 (Version 1)
Quarter: 2013Q4

REPORT INFORMATION
  Report Type: Spontaneous
  Country: US (occurrence: US)
  Receive Date: 20131010
  Receipt Date: 20131010
  Transmission Date: 20140711
  Serious: Yes (Hospitalization)
  Sender: FDA-Public Use
  Company Number: US-PFIZER INC-2013286628

PATIENT
  Age: 2 Year
  Sex: Female
  Weight: 13.15 kg

DRUGS (2)
  1. CHILDRENS ADVIL [Suspect]
     Indication: PYREXIA
     Dosage: UNK, AS NEEDED
     Route: 048
     Dates: start: 20131003, end: 20131004
  2. KEFLEX [Suspect]
     Dosage: UNK

REACTIONS (2)
  - Urticaria [Not Recovered/Not Resolved]
  - Discomfort [Not Recovered/Not Resolved]
